FAERS Safety Report 25106387 (Version 1)
Quarter: 2025Q1

REPORT INFORMATION
  Report Type: Spontaneous
  Country: US (occurrence: None)
  Receive Date: 20250320
  Receipt Date: 20250320
  Transmission Date: 20250409
  Serious: Yes (Life-Threatening)
  Sender: FDA-CTU
  Company Number: None

PATIENT
  Age: 51 Year
  Sex: Female

DRUGS (1)
  1. TERBINAFINE HYDROCHLORIDE [Suspect]
     Active Substance: TERBINAFINE HYDROCHLORIDE
     Indication: Localised infection
     Dosage: FREQUENCY : DAILY;?
     Route: 048

REACTIONS (4)
  - Angioedema [None]
  - Anaphylactic reaction [None]
  - Oral mucosal blistering [None]
  - Anaphylactic shock [None]

NARRATIVE: CASE EVENT DATE: 20241115
